FAERS Safety Report 6975676-5 (Version None)
Quarter: 2010Q3

REPORT INFORMATION
  Report Type: 
  Country: None (occurrence: None)
  Receive Date: 20100908
  Receipt Date: 20100824
  Transmission Date: 20110219
  Serious: Yes (Hospitalization)
  Sender: FDA-Public Use
  Company Number: 2010S1000731

PATIENT
  Age: 42 Year
  Sex: Male
  Weight: 184 kg

DRUGS (2)
  1. LIVALO [Suspect]
     Dosage: 2 MG; PO
     Route: 048
     Dates: start: 20100716, end: 20100817
  2. CHANTIX [Suspect]
     Dosage: 1 MG; BID;
     Dates: start: 20100706, end: 20100817

REACTIONS (4)
  - BILIARY DYSKINESIA [None]
  - CHOLECYSTECTOMY [None]
  - HEPATOBILIARY SCAN ABNORMAL [None]
  - HEPATOSPLENOMEGALY [None]
